FAERS Safety Report 18900818 (Version 1)
Quarter: 2021Q1

REPORT INFORMATION
  Report Type: Spontaneous
  Country: US (occurrence: US)
  Receive Date: 20210216
  Receipt Date: 20210216
  Transmission Date: 20210420
  Serious: No
  Sender: FDA-Public Use
  Company Number: US-ASTRAZENECA-2021A049445

PATIENT
  Sex: Female
  Weight: 95.7 kg

DRUGS (1)
  1. PULMICORT FLEXHALER [Suspect]
     Active Substance: BUDESONIDE
     Indication: DYSPNOEA
     Route: 055
     Dates: start: 20210204

REACTIONS (3)
  - Dyspnoea [Not Recovered/Not Resolved]
  - Device failure [Unknown]
  - Product dose omission in error [Unknown]
